FAERS Safety Report 6566727-0 (Version None)
Quarter: 2010Q1

REPORT INFORMATION
  Report Type: 
  Country: None (occurrence: None)
  Receive Date: 20100202
  Receipt Date: 20100128
  Transmission Date: 20100710
  Serious: Yes (Life-Threatening)
  Sender: FDA-Public Use
  Company Number: FR-SANOFI-AVENTIS-200810118FR

PATIENT
  Age: 17 Year
  Sex: Male

DRUGS (7)
  1. ACEBUTOLOL HYDROCHLORIDE [Suspect]
     Indication: SUICIDE ATTEMPT
     Dosage: DOSE UNIT: 200 MG
     Route: 048
     Dates: start: 20071113, end: 20071113
  2. ZESTRIL [Suspect]
     Indication: SUICIDE ATTEMPT
     Route: 048
     Dates: start: 20071113, end: 20071113
  3. ZOCOR [Suspect]
     Indication: SUICIDE ATTEMPT
     Route: 048
     Dates: start: 20071113, end: 20071113
  4. PLAVIX [Suspect]
     Indication: SUICIDE ATTEMPT
     Dosage: DOSE UNIT: 75 MG
     Route: 048
     Dates: start: 20071113, end: 20071113
  5. DIOSMIN [Suspect]
     Indication: SUICIDE ATTEMPT
     Route: 048
     Dates: start: 20071113, end: 20071113
  6. ALPRAZOLAM [Suspect]
     Indication: SUICIDE ATTEMPT
     Route: 048
     Dates: start: 20071113, end: 20071113
  7. PERMIXON [Suspect]
     Indication: SUICIDE ATTEMPT
     Dosage: DOSE UNIT: 160 MG
     Route: 048
     Dates: start: 20071113, end: 20071113

REACTIONS (2)
  - CARDIAC ARREST [None]
  - MULTIPLE DRUG OVERDOSE INTENTIONAL [None]
